FAERS Safety Report 8276074-7 (Version None)
Quarter: 2012Q2

REPORT INFORMATION
  Report Type: 
  Country: None (occurrence: None)
  Receive Date: 20120406
  Receipt Date: 20120330
  Transmission Date: 20120825
  Serious: Yes (Other)
  Sender: FDA-Public Use
  Company Number: 2012SP012023

PATIENT
  Sex: Male

DRUGS (5)
  1. RIBAVIRIN [Suspect]
     Indication: HEPATITIS C
     Dosage: 200 MG; QAM; PO, QPM; PO
     Route: 048
     Dates: start: 20120210
  2. TELAPREVIR (375 MG) [Suspect]
     Indication: HEPATITIS C
     Dosage: 375 MG; Q8H; PO
     Route: 048
     Dates: start: 20120210
  3. LORTAB [Concomitant]
  4. ATIVAN [Concomitant]
  5. PEG-INTRON [Suspect]
     Indication: HEPATITIS C
     Dosage: 150 MCG; QW
     Dates: start: 20120209

REACTIONS (6)
  - NAUSEA [None]
  - HYPERSOMNIA [None]
  - SUICIDAL IDEATION [None]
  - CONDITION AGGRAVATED [None]
  - DECREASED APPETITE [None]
  - TREATMENT NONCOMPLIANCE [None]
